FAERS Safety Report 14986636 (Version 1)
Quarter: 2018Q2

REPORT INFORMATION
  Report Type: Spontaneous
  Country: DK (occurrence: DK)
  Receive Date: 20180608
  Receipt Date: 20180608
  Transmission Date: 20180711
  Serious: Yes (Other)
  Sender: FDA-Public Use
  Company Number: DK-AMGEN-DNKSP2018075189

PATIENT
  Age: 82 Year
  Sex: Male

DRUGS (7)
  1. XGEVA [Suspect]
     Active Substance: DENOSUMAB
     Indication: PROPHYLAXIS
  2. ACLASTA [Suspect]
     Active Substance: ZOLEDRONIC ACID
     Indication: OSTEOPOROTIC FRACTURE
     Dosage: 5 MG PER 100 ML, UNK
     Route: 042
     Dates: start: 20150420
  3. XGEVA [Suspect]
     Active Substance: DENOSUMAB
     Indication: ILL-DEFINED DISORDER
     Dosage: 120 MG Q4WK
     Route: 058
     Dates: start: 201601, end: 20180123
  4. OMEPRAZOL ACTAVIS [Concomitant]
     Active Substance: OMEPRAZOLE
     Indication: GASTRIC ULCER
     Dosage: 20 MG UNK
     Route: 048
     Dates: start: 20150505
  5. UNIKALK OSTEO [Concomitant]
     Indication: MINERAL SUPPLEMENTATION
     Dosage: 2 DF QD
     Route: 048
     Dates: start: 20180403
  6. LOSARTAN BLUEFISH [Concomitant]
     Active Substance: LOSARTAN
     Indication: HYPERTENSION
     Dosage: 100 MG, UNK
     Route: 048
     Dates: start: 20110802
  7. UNIKALK OSTEO [Concomitant]
     Indication: VITAMIN SUPPLEMENTATION

REACTIONS (3)
  - Impaired healing [Recovered/Resolved]
  - Osteonecrosis of jaw [Recovered/Resolved]
  - Sequestrectomy [Recovered/Resolved]

NARRATIVE: CASE EVENT DATE: 2017
